FAERS Safety Report 7539474-6 (Version None)
Quarter: 2011Q2

REPORT INFORMATION
  Report Type: 
  Country: None (occurrence: None)
  Receive Date: 20110609
  Receipt Date: 20110609
  Transmission Date: 20111010
  Serious: Yes (Hospitalization)
  Sender: FDA-Public Use
  Company Number: None

PATIENT
  Age: 71 Year
  Sex: Female

DRUGS (1)
  1. VISIPAQUE 320 [Suspect]
     Indication: ABDOMINAL PAIN
     Dosage: 150 ML ONCE IV
     Route: 042
     Dates: start: 20110411

REACTIONS (3)
  - SNEEZING [None]
  - MALAISE [None]
  - UNRESPONSIVE TO STIMULI [None]
